FAERS Safety Report 7737993-0 (Version None)
Quarter: 2011Q3

REPORT INFORMATION
  Report Type: 
  Country: None (occurrence: None)
  Receive Date: 20110908
  Receipt Date: 20110829
  Transmission Date: 20111222
  Serious: Yes (Hospitalization)
  Sender: FDA-Public Use
  Company Number: US-BAYER-2011-018097

PATIENT
  Age: 30 Year
  Sex: Female
  Weight: 63.492 kg

DRUGS (3)
  1. ALLEGRA-D 12 HOUR [Concomitant]
     Indication: SEASONAL ALLERGY
     Dosage: UNK UNK, QD
     Dates: start: 20090101
  2. YAZ [Suspect]
     Indication: CONTRACEPTION
     Dosage: UNK
     Dates: start: 20080401, end: 20080901
  3. LUTERA-28 [Concomitant]
     Indication: CONTRACEPTION
     Dosage: UNK
     Dates: start: 20081001

REACTIONS (5)
  - CHOLECYSTITIS [None]
  - INJURY [None]
  - GALLBLADDER DISORDER [None]
  - PAIN [None]
  - CHOLELITHIASIS [None]
